FAERS Safety Report 5997998-7 (Version None)
Quarter: 2008Q4

REPORT INFORMATION
  Report Type: 
  Country: None (occurrence: None)
  Receive Date: 20081211
  Receipt Date: 20081125
  Transmission Date: 20090506
  Serious: Yes (Death)
  Sender: FDA-Public Use
  Company Number: KV200800540

PATIENT
  Age: 76 Year
  Sex: Male
  Weight: 108.8 kg

DRUGS (5)
  1. MORPHINE SULFATE [Suspect]
     Indication: BACK PAIN
     Dosage: 15 MG, TID, ORAL
     Route: 048
     Dates: start: 20081008, end: 20081011
  2. VITAMIN B12 /00056201/ (CYANOCOBALAMIN) [Concomitant]
  3. ARICEPT [Concomitant]
  4. NAMENDA [Concomitant]
  5. LORTAB [Concomitant]

REACTIONS (3)
  - DEMENTIA ALZHEIMER'S TYPE [None]
  - DISEASE PROGRESSION [None]
  - PRODUCT QUALITY ISSUE [None]
